FAERS Safety Report 15016479 (Version 1)
Quarter: 2018Q2

REPORT INFORMATION
  Report Type: Spontaneous
  Country: US (occurrence: US)
  Receive Date: 20180531
  Receipt Date: 20180531
  Transmission Date: 20180711
  Serious: Yes (Hospitalization)
  Sender: FDA-Public Use
  Company Number: None

PATIENT
  Age: 67 Year
  Sex: Male
  Weight: 81.6 kg

DRUGS (22)
  1. OXYBUTYNIN. [Concomitant]
     Active Substance: OXYBUTYNIN CHLORIDE
     Dates: start: 20180522, end: 20180531
  2. LINEZOLID. [Suspect]
     Active Substance: LINEZOLID
     Indication: URINARY TRACT INFECTION
     Route: 048
     Dates: start: 20180524, end: 20180531
  3. HYDROCODONE/ACETAMINOPHEN [Concomitant]
     Active Substance: ACETAMINOPHEN\HYDROCODONE
     Dates: start: 20180522, end: 20180531
  4. ISOSORBIDE MONONITRATE. [Concomitant]
     Active Substance: ISOSORBIDE MONONITRATE
     Dates: start: 20180522, end: 20180530
  5. NYSTATIN. [Concomitant]
     Active Substance: NYSTATIN
     Dates: start: 20180522, end: 20180531
  6. FERROUS SULFATE. [Concomitant]
     Active Substance: FERROUS SULFATE
     Dates: start: 20180522, end: 20180531
  7. HYOSCYAMINE. [Concomitant]
     Active Substance: HYOSCYAMINE
     Dates: start: 20180522, end: 20180531
  8. INSULIN LISPRO [Concomitant]
     Active Substance: INSULIN LISPRO
     Dates: start: 20180522, end: 20180531
  9. IPRATROPIUM [Concomitant]
     Active Substance: IPRATROPIUM
     Dates: start: 20180525, end: 20180531
  10. LEVOFLOXACIN. [Concomitant]
     Active Substance: LEVOFLOXACIN
     Dates: start: 20180521, end: 20180524
  11. MEROPENEM. [Concomitant]
     Active Substance: MEROPENEM
     Dates: start: 20180525, end: 20180531
  12. AMIODARONE [Concomitant]
     Active Substance: AMIODARONE
     Dates: start: 20180530, end: 20180531
  13. CEFEPIME [Concomitant]
     Active Substance: CEFEPIME HYDROCHLORIDE
     Dates: start: 20180524, end: 20180525
  14. LEVALBUTEROL. [Concomitant]
     Active Substance: LEVALBUTEROL
     Dates: start: 20180530, end: 20180531
  15. TAMSULOSIN [Concomitant]
     Active Substance: TAMSULOSIN
     Dates: start: 20180522, end: 20180531
  16. MORPHINE [Concomitant]
     Active Substance: MORPHINE
     Dates: start: 20180522, end: 20180531
  17. PAROXETINE. [Concomitant]
     Active Substance: PAROXETINE
     Dates: start: 20180522, end: 20180531
  18. TARAZOSIN [Concomitant]
     Active Substance: TERAZOSIN HYDROCHLORIDE ANHYDROUS
     Dates: start: 20180522, end: 20180531
  19. IRON-MULTIVITAMINS-MINERALS [Concomitant]
     Dates: start: 20180522, end: 20180531
  20. BICALUTAMIDE. [Concomitant]
     Active Substance: BICALUTAMIDE
     Dates: start: 20180530, end: 20180531
  21. EPOETIN ALFA [Concomitant]
     Active Substance: ERYTHROPOIETIN
     Dates: start: 20180523, end: 20180531
  22. FINASTERIDE. [Concomitant]
     Active Substance: FINASTERIDE
     Dates: start: 20180522, end: 20180531

REACTIONS (3)
  - Platelet count decreased [None]
  - Cystoscopy abnormal [None]
  - Haematuria [None]

NARRATIVE: CASE EVENT DATE: 20180530
